FAERS Safety Report 5732952-1 (Version None)
Quarter: 2008Q2

REPORT INFORMATION
  Report Type: 
  Country: None (occurrence: None)
  Receive Date: 20080507
  Receipt Date: 20080507
  Transmission Date: 20081010
  Serious: Yes (Hospitalization, Disabling)
  Sender: FDA-Public Use
  Company Number: None

PATIENT
  Age: 68 Year
  Sex: Male
  Weight: 79 kg

DRUGS (6)
  1. DIGOXIN [Suspect]
     Indication: ATRIAL FIBRILLATION
     Dosage: 3 TABLETS - DECREASED DAILY PO
     Route: 048
     Dates: start: 20080426, end: 20080430
  2. PROPAFENONE HYDROCHLORIDE [Concomitant]
  3. LIPITOR [Concomitant]
  4. WARFARIN SODIUM [Concomitant]
  5. CARTEOLOL HYDROCHLORIDE [Concomitant]
  6. XALATAN [Concomitant]

REACTIONS (7)
  - CHEST DISCOMFORT [None]
  - DECREASED APPETITE [None]
  - DYSPNOEA [None]
  - FEELING ABNORMAL [None]
  - ILL-DEFINED DISORDER [None]
  - NAUSEA [None]
  - PALPITATIONS [None]
